FAERS Safety Report 24163214 (Version 1)
Quarter: 2024Q3

REPORT INFORMATION
  Report Type: Spontaneous
  Country: US (occurrence: None)
  Receive Date: 20240801
  Receipt Date: 20240801
  Transmission Date: 20241016
  Serious: No
  Sender: Public
  Company Number: None

PATIENT
  Age: 62 Year
  Sex: Male
  Weight: 86.5 kg

DRUGS (1)
  1. XELODA [Suspect]
     Active Substance: CAPECITABINE
     Dates: end: 20240718

REACTIONS (4)
  - Transient ischaemic attack [None]
  - Computerised tomogram head abnormal [None]
  - Cerebral artery stenosis [None]
  - Cerebral microangiopathy [None]

NARRATIVE: CASE EVENT DATE: 20240723
